FAERS Safety Report 6268813-1 (Version None)
Quarter: 2009Q3

REPORT INFORMATION
  Report Type: 
  Country: None (occurrence: None)
  Receive Date: 20090715
  Receipt Date: 20090707
  Transmission Date: 20100115
  Serious: Yes (Life-Threatening, Other)
  Sender: FDA-Public Use
  Company Number: US-GENENTECH-284102

PATIENT
  Sex: Female
  Weight: 75.283 kg

DRUGS (11)
  1. XOLAIR [Suspect]
     Indication: ASTHMA
     Dosage: 150 MG, 1/MONTH
     Route: 058
     Dates: start: 20070828
  2. NASONEX [Concomitant]
     Indication: RHINITIS ALLERGIC
     Dosage: 2 UNK, QD
     Route: 055
  3. ADDERALL 10 [Concomitant]
     Indication: DRUG USE FOR UNKNOWN INDICATION
  4. ZYFLO CR [Concomitant]
     Indication: ASTHMA
     Dosage: 2 TABLET, BID
     Route: 048
  5. OMNARIS [Concomitant]
     Indication: RHINITIS ALLERGIC
     Dosage: 2 UNK, QD
     Route: 055
  6. WELLBUTRIN [Concomitant]
     Indication: DRUG USE FOR UNKNOWN INDICATION
  7. ASTELIN [Concomitant]
     Indication: RHINITIS ALLERGIC
     Dosage: 2 UNK, BID
     Route: 055
  8. ZYRTEC [Concomitant]
     Indication: RHINITIS ALLERGIC
     Dosage: 10 MG, QHS
     Route: 048
  9. ADVAIR HFA [Concomitant]
     Indication: ASTHMA
     Dosage: 2 PUFF, BID
     Route: 055
  10. XOPENEX [Concomitant]
     Indication: ASTHMA
     Dosage: 1 VIAL, PRN
     Route: 055
  11. ATROVENT [Concomitant]
     Indication: ASTHMA
     Dosage: 1 VIAL, PRN
     Route: 055

REACTIONS (1)
  - HYPERSENSITIVITY [None]
